FAERS Safety Report 24339854 (Version 2)
Quarter: 2024Q4

REPORT INFORMATION
  Report Type: Spontaneous
  Country: US (occurrence: US)
  Receive Date: 20240919
  Receipt Date: 20241016
  Transmission Date: 20250114
  Serious: No
  Sender: PFIZER
  Company Number: US-PFIZER INC-PV202400121981

PATIENT
  Age: 74 Year
  Sex: Female

DRUGS (2)
  1. XELJANZ XR [Suspect]
     Active Substance: TOFACITINIB CITRATE
     Indication: Rheumatoid arthritis
     Dosage: 11 MG
  2. XELJANZ XR [Suspect]
     Active Substance: TOFACITINIB CITRATE
     Indication: Eczema

REACTIONS (6)
  - Nausea [Recovered/Resolved]
  - Pyrexia [Unknown]
  - Pain [Unknown]
  - Eating disorder [Unknown]
  - Weight increased [Unknown]
  - Product dose omission in error [Unknown]
